FAERS Safety Report 4971993-9 (Version None)
Quarter: 2006Q2

REPORT INFORMATION
  Report Type: 
  Country: None (occurrence: None)
  Receive Date: 20060412
  Receipt Date: 20060412
  Transmission Date: 20061013
  Serious: Yes (Life-Threatening)
  Sender: FDA-Public Use
  Company Number: None

PATIENT
  Age: 88 Year
  Sex: Female
  Weight: 35 kg

DRUGS (11)
  1. COUMADIN [Suspect]
     Indication: CEREBROVASCULAR ACCIDENT
     Dosage: 3 MG DAILY PO
     Route: 048
     Dates: start: 20051201, end: 20060410
  2. LEVAQUIN [Suspect]
     Indication: URINARY TRACT INFECTION
     Dosage: 500 MG DAILY PO
     Route: 048
     Dates: start: 20060331, end: 20060410
  3. PREDNISONE [Concomitant]
  4. ARICEPT [Concomitant]
  5. PEPCID [Concomitant]
  6. LASIX [Concomitant]
  7. MAALOX PLUS [Concomitant]
  8. TOPROL-XL [Concomitant]
  9. LORTAB [Concomitant]
  10. LORAZEPAM [Concomitant]
  11. ISOSORBIDE [Concomitant]

REACTIONS (2)
  - HAEMATURIA [None]
  - INTERNATIONAL NORMALISED RATIO INCREASED [None]
